FAERS Safety Report 9162953 (Version 2)
Quarter: 2013Q1

REPORT INFORMATION
  Report Type: Spontaneous
  Country: DE (occurrence: None)
  Receive Date: 20130227
  Receipt Date: 20130315
  Transmission Date: 20140127
  Serious: Yes (Other)
  Sender: FDA-Public Use
  Company Number: 2013-022095

PATIENT
  Sex: Male

DRUGS (1)
  1. EYLEA (AFLIBERCEPT) SOLUTION FOR INJECTION [Suspect]
     Route: 031
     Dates: start: 20130208, end: 20130208

REACTIONS (3)
  - Detachment of retinal pigment epithelium [None]
  - Eye haemorrhage [None]
  - Visual impairment [None]
